FAERS Safety Report 6110295-4 (Version None)
Quarter: 2009Q1

REPORT INFORMATION
  Report Type: 
  Country: None (occurrence: None)
  Receive Date: 20090310
  Receipt Date: 20090306
  Transmission Date: 20090719
  Serious: Yes (Hospitalization)
  Sender: FDA-Public Use
  Company Number: JP-BRISTOL-MYERS SQUIBB COMPANY-14535181

PATIENT
  Age: 57 Year
  Sex: Female

DRUGS (2)
  1. TAXOL [Suspect]
     Indication: CERVIX CARCINOMA
     Route: 041
     Dates: start: 20090305, end: 20090305
  2. PARAPLATIN [Suspect]
     Indication: CERVIX CARCINOMA
     Route: 041
     Dates: start: 20090305, end: 20090305

REACTIONS (1)
  - PANCREATITIS ACUTE [None]
